FAERS Safety Report 9419995 (Version 1)
Quarter: 2013Q3

REPORT INFORMATION
  Report Type: Spontaneous
  Country: US (occurrence: None)
  Receive Date: 20130724
  Receipt Date: 20130724
  Transmission Date: 20140515
  Serious: Yes (Other)
  Sender: FDA-Public Use
  Company Number: None

PATIENT
  Age: 58 Year
  Sex: Male

DRUGS (1)
  1. PEGLOTICASE [Suspect]
     Dosage: 8MG ONCE IV DRIP
     Route: 041
     Dates: start: 20130612, end: 20130612

REACTIONS (2)
  - Lip swelling [None]
  - Infusion related reaction [None]
